FAERS Safety Report 7081184-6 (Version None)
Quarter: 2010Q4

REPORT INFORMATION
  Report Type: 
  Country: None (occurrence: None)
  Receive Date: 20101103
  Receipt Date: 20101026
  Transmission Date: 20110411
  Serious: Yes (Hospitalization, Other)
  Sender: FDA-Public Use
  Company Number: FR-BAYER-200817305GPV

PATIENT
  Age: 73 Year
  Sex: Female

DRUGS (4)
  1. CIFLOX [Suspect]
     Indication: URINARY TRACT INFECTION
     Dosage: TOTAL DAILY DOSE: 1 G  UNIT DOSE: 500 MG
     Route: 048
     Dates: start: 20080407, end: 20080410
  2. LEPONEX [Suspect]
     Indication: PSYCHOTIC DISORDER
     Dosage: TOTAL DAILY DOSE: 75 MG  UNIT DOSE: 25 MG
     Route: 048
     Dates: start: 20080307, end: 20080410
  3. LEPONEX [Suspect]
     Route: 048
     Dates: start: 20080429, end: 20080513
  4. LAMICSTART [Suspect]
     Dosage: TOTAL DAILY DOSE: 75 MG  UNIT DOSE: 25 MG
     Route: 048
     Dates: start: 20080307, end: 20100410

REACTIONS (3)
  - GRANULOCYTOPENIA [None]
  - LEUKOPENIA [None]
  - NEUTROPENIA [None]
